FAERS Safety Report 9813174 (Version 2)
Quarter: 2014Q1

REPORT INFORMATION
  Report Type: Spontaneous
  Country: US (occurrence: US)
  Receive Date: 20140113
  Receipt Date: 20140218
  Transmission Date: 20141002
  Serious: Yes (Hospitalization)
  Sender: FDA-Public Use
  Company Number: US-PFIZER INC-2014005252

PATIENT
  Age: 65 Year
  Sex: Male
  Weight: 109 kg

DRUGS (3)
  1. CELEBREX [Suspect]
     Indication: ARTHRALGIA
     Dosage: 200 MG, 3X/DAY
     Route: 048
     Dates: end: 2013
  2. COUMADIN [Concomitant]
     Indication: ANTICOAGULANT THERAPY
     Dosage: UNK
  3. PRAVASTATIN [Concomitant]
     Indication: BLOOD CHOLESTEROL INCREASED
     Dosage: UNK

REACTIONS (3)
  - Cerebral thrombosis [Recovered/Resolved]
  - Cerebral haemorrhage [Recovered/Resolved]
  - Overweight [Unknown]
